FAERS Safety Report 5878452-X (Version None)
Quarter: 2008Q3

REPORT INFORMATION
  Report Type: 
  Country: None (occurrence: None)
  Receive Date: 20080911
  Receipt Date: 20070906
  Transmission Date: 20090109
  Serious: No
  Sender: FDA-Public Use
  Company Number: US-AMGEN-US223533

PATIENT
  Sex: Female
  Weight: 53.6 kg

DRUGS (4)
  1. NEUPOGEN [Suspect]
     Indication: PERIPHERAL BLOOD STEM CELL APHERESIS
     Route: 058
     Dates: end: 20070504
  2. MORPHINE [Concomitant]
     Route: 065
     Dates: start: 20070301
  3. ZANTAC [Concomitant]
     Route: 065
  4. ZOLOFT [Concomitant]
     Route: 065

REACTIONS (3)
  - CHEST PAIN [None]
  - DYSPNOEA [None]
  - HYPERHIDROSIS [None]
